FAERS Safety Report 6304592-7 (Version None)
Quarter: 2009Q3

REPORT INFORMATION
  Report Type: 
  Country: None (occurrence: None)
  Receive Date: 20090811
  Receipt Date: 20090730
  Transmission Date: 20100115
  Serious: Yes (Other)
  Sender: FDA-Public Use
  Company Number: US-JNJFOC-20090800443

PATIENT
  Age: 32 Year
  Sex: Male
  Weight: 66.23 kg

DRUGS (5)
  1. LEVAQUIN [Suspect]
     Indication: SINUS POLYP
     Route: 048
  2. FLONASE [Concomitant]
     Indication: SINUS DISORDER
     Route: 045
  3. ADVAIR HFA [Concomitant]
     Indication: ASTHMA
     Route: 055
  4. STOMACH AGENT [Concomitant]
     Indication: GASTRIC DISORDER
     Route: 048
  5. DIVALPROEX SODIUM [Concomitant]
     Indication: ABNORMAL BEHAVIOUR
     Route: 048

REACTIONS (5)
  - DISTURBANCE IN ATTENTION [None]
  - ELECTROCARDIOGRAM ABNORMAL [None]
  - FEELING ABNORMAL [None]
  - GINGIVAL PAIN [None]
  - HYPERHIDROSIS [None]
